FAERS Safety Report 6763947-7 (Version None)
Quarter: 2010Q2

REPORT INFORMATION
  Report Type: 
  Country: None (occurrence: None)
  Receive Date: 20100608
  Receipt Date: 20100528
  Transmission Date: 20101027
  Serious: Yes (Hospitalization, Other)
  Sender: FDA-Public Use
  Company Number: 2010US001680

PATIENT
  Age: 64 Year
  Sex: Male

DRUGS (16)
  1. LEXISCAN [Suspect]
     Indication: SCAN MYOCARDIAL PERFUSION
     Dosage: UNK; IV NOS
     Route: 042
     Dates: start: 20100514, end: 20100514
  2. AVANDIA [Concomitant]
  3. CLONOPIN [Concomitant]
  4. CYMBALTA [Concomitant]
  5. DIOVAN [Concomitant]
  6. GABAPENTIN [Concomitant]
  7. HUMALOG [Concomitant]
  8. VICODIN [Concomitant]
  9. LANTUS [Concomitant]
  10. LUNESTA (ESXOPICLONE) [Concomitant]
  11. MIRAPEX [Concomitant]
  12. PRILOSEC (OMEPRAZOLE) [Concomitant]
  13. OXYCONTINI (OXYCODOONE HYDROCHLORIDE) [Concomitant]
  14. PLAVIX [Concomitant]
  15. TRAZODONE HCL [Concomitant]
  16. PRAVACHOL [Concomitant]

REACTIONS (10)
  - ACUTE RESPIRATORY FAILURE [None]
  - BLOOD PRESSURE SYSTOLIC INCREASED [None]
  - BLOOD THYROID STIMULATING HORMONE INCREASED [None]
  - BRADYCARDIA [None]
  - CHEST PAIN [None]
  - CONVULSION [None]
  - HEART RATE INCREASED [None]
  - HEMIPARESIS [None]
  - HYPOTENSION [None]
  - LOSS OF CONSCIOUSNESS [None]
